FAERS Safety Report 14676629 (Version 1)
Quarter: 2018Q1

REPORT INFORMATION
  Report Type: Spontaneous
  Country: US (occurrence: US)
  Receive Date: 20180324
  Receipt Date: 20180324
  Transmission Date: 20180509
  Serious: No
  Sender: FDA-Public Use
  Company Number: US-JNJFOC-20180239063

PATIENT
  Age: 6 Month
  Sex: Male
  Weight: 6.8 kg

DRUGS (1)
  1. CHILDRENS TYLENOL [Suspect]
     Active Substance: ACETAMINOPHEN
     Indication: PAIN
     Dosage: GIVEN 1.5 ML EACH TIME, ON TWO SEPARATE OCCASIONS
     Route: 048
     Dates: start: 20180222, end: 20180222

REACTIONS (3)
  - Suspected product contamination [Unknown]
  - Wrong technique in product usage process [Unknown]
  - Drug administration error [Unknown]

NARRATIVE: CASE EVENT DATE: 20180222
